FAERS Safety Report 7110497-4 (Version None)
Quarter: 2010Q4

REPORT INFORMATION
  Report Type: 
  Country: None (occurrence: None)
  Receive Date: 20101116
  Receipt Date: 20101116
  Transmission Date: 20110411
  Serious: No
  Sender: FDA-Public Use
  Company Number: None

PATIENT
  Age: 59 Year
  Sex: Male

DRUGS (1)
  1. CATAPRES-TTS-2 [Suspect]
     Indication: HYPERTENSION
     Dosage: 0.2 MG TRANSDERMALLY, PATCH CHANGED ONCE WEEKLY
     Route: 062
     Dates: start: 20101002, end: 20101104

REACTIONS (2)
  - BLOOD PRESSURE INCREASED [None]
  - PRODUCT QUALITY ISSUE [None]
